FAERS Safety Report 6466585-9 (Version None)
Quarter: 2009Q4

REPORT INFORMATION
  Report Type: 
  Country: None (occurrence: None)
  Receive Date: 20091127
  Receipt Date: 20091113
  Transmission Date: 20100525
  Serious: Yes (Disabling, Other)
  Sender: FDA-Public Use
  Company Number: 2009AL007243

PATIENT
  Sex: Female

DRUGS (1)
  1. METOCLOPRAMIDE [Suspect]
     Indication: GASTROOESOPHAGEAL REFLUX DISEASE
     Dosage: 10 MG;
     Dates: start: 20000101, end: 20070101

REACTIONS (5)
  - ATHETOSIS [None]
  - CHOREA [None]
  - DYSTONIA [None]
  - PAIN [None]
  - TARDIVE DYSKINESIA [None]
